FAERS Safety Report 25406582 (Version 1)
Quarter: 2025Q2

REPORT INFORMATION
  Report Type: Spontaneous
  Country: FR (occurrence: FR)
  Receive Date: 20250606
  Receipt Date: 20250606
  Transmission Date: 20250716
  Serious: Yes (Death)
  Sender: MYLAN
  Company Number: None

PATIENT
  Age: 88 Year
  Sex: Male

DRUGS (12)
  1. PREGABALIN [Suspect]
     Active Substance: PREGABALIN
     Indication: Product used for unknown indication
  2. PREGABALIN [Suspect]
     Active Substance: PREGABALIN
     Route: 065
  3. PREGABALIN [Suspect]
     Active Substance: PREGABALIN
     Route: 065
  4. PREGABALIN [Suspect]
     Active Substance: PREGABALIN
  5. OXYCODONE [Suspect]
     Active Substance: OXYCODONE
     Indication: Product used for unknown indication
  6. OXYCODONE [Suspect]
     Active Substance: OXYCODONE
     Route: 065
  7. OXYCODONE [Suspect]
     Active Substance: OXYCODONE
     Route: 065
  8. OXYCODONE [Suspect]
     Active Substance: OXYCODONE
  9. CLOBAZAM [Suspect]
     Active Substance: CLOBAZAM
     Indication: Product used for unknown indication
  10. CLOBAZAM [Suspect]
     Active Substance: CLOBAZAM
     Route: 065
  11. CLOBAZAM [Suspect]
     Active Substance: CLOBAZAM
     Route: 065
  12. CLOBAZAM [Suspect]
     Active Substance: CLOBAZAM

REACTIONS (1)
  - Death [Fatal]

NARRATIVE: CASE EVENT DATE: 20230101
